FAERS Safety Report 23521283 (Version 1)
Quarter: 2024Q1

REPORT INFORMATION
  Report Type: Spontaneous
  Country: PL (occurrence: PL)
  Receive Date: 20240214
  Receipt Date: 20240214
  Transmission Date: 20240409
  Serious: Yes (Other)
  Sender: FDA-Public Use
  Company Number: None

PATIENT
  Age: 54 Year
  Sex: Female
  Weight: 93 kg

DRUGS (1)
  1. METHOTREXATE SODIUM [Suspect]
     Active Substance: METHOTREXATE SODIUM
     Indication: Psoriatic arthropathy
     Dates: start: 20170609, end: 20171219

REACTIONS (3)
  - Dermal cyst [Recovered/Resolved]
  - Salpingo-oophoritis [Recovered/Resolved]
  - Infection susceptibility increased [Recovered/Resolved]
